FAERS Safety Report 4474196-X (Version None)
Quarter: 2004Q4

REPORT INFORMATION
  Report Type: 
  Country: None (occurrence: None)
  Receive Date: 20041008
  Receipt Date: 20040921
  Transmission Date: 20050328
  Serious: Yes (Hospitalization, Other)
  Sender: FDA-Public Use
  Company Number: JP_040202677

PATIENT
  Age: 76 Year
  Sex: Male
  Weight: 57 kg

DRUGS (6)
  1. ZYPREXA [Suspect]
     Indication: SCHIZOPHRENIA
     Dosage: 10 MG/1 DAY
     Route: 048
     Dates: start: 20040123, end: 20040205
  2. CIPROXAN             (CIPROFLOXACIN HYDROCHLORIDE) [Concomitant]
  3. SERENACE (HALOPPERIDOL) [Concomitant]
  4. AKINETON [Concomitant]
  5. DIAZEPAM [Concomitant]
  6. ROHYPNOL (FLUNITRAZEPAM) [Concomitant]

REACTIONS (7)
  - ALANINE AMINOTRANSFERASE INCREASED [None]
  - ASPARTATE AMINOTRANSFERASE INCREASED [None]
  - BLOOD CREATINE PHOSPHOKINASE INCREASED [None]
  - BLOOD LACTATE DEHYDROGENASE INCREASED [None]
  - HEPATIC FUNCTION ABNORMAL [None]
  - INFLUENZA [None]
  - PYREXIA [None]
